FAERS Safety Report 9508345 (Version 1)
Quarter: 2013Q3

REPORT INFORMATION
  Report Type: Spontaneous
  Country: US (occurrence: None)
  Receive Date: 20130906
  Receipt Date: 20130906
  Transmission Date: 20140515
  Serious: Yes (Hospitalization)
  Sender: FDA-Public Use
  Company Number: None

PATIENT
  Age: 46 Year
  Sex: Female
  Weight: 106.14 kg

DRUGS (1)
  1. XARELTO [Suspect]
     Indication: DEEP VEIN THROMBOSIS
     Dosage: 1 TABLET, BID, ORAL
     Route: 048
     Dates: start: 20130811, end: 20130903

REACTIONS (3)
  - Asthenia [None]
  - Vaginal haemorrhage [None]
  - Thrombosis [None]
